FAERS Safety Report 20232347 (Version 2)
Quarter: 2022Q2

REPORT INFORMATION
  Report Type: Spontaneous
  Country: CA (occurrence: CA)
  Receive Date: 20211227
  Receipt Date: 20220630
  Transmission Date: 20220721
  Serious: Yes (Hospitalization, Other)
  Sender: FDA-Public Use
  Company Number: CA-SA-SAC20211224000134

PATIENT
  Age: 54 Year
  Sex: Female
  Weight: 77 kg

DRUGS (55)
  1. CLOPIDOGREL BISULFATE [Suspect]
     Active Substance: CLOPIDOGREL BISULFATE
     Indication: Product used for unknown indication
     Dosage: 75 MG, QD
  2. CLOPIDOGREL BISULFATE [Suspect]
     Active Substance: CLOPIDOGREL BISULFATE
     Dosage: UNK
  3. CLOPIDOGREL BISULFATE [Suspect]
     Active Substance: CLOPIDOGREL BISULFATE
     Dosage: UNK
  4. ALVESCO [Suspect]
     Active Substance: CICLESONIDE
     Indication: Product used for unknown indication
     Dosage: 400 UG (AEROSOL, METERED DOSE)
     Route: 055
  5. ALVESCO [Suspect]
     Active Substance: CICLESONIDE
     Dosage: 50 MG, QD (PRESSURISED INHALATION,SOLUTION)
     Route: 055
  6. ALVESCO [Suspect]
     Active Substance: CICLESONIDE
     Dosage: 400 MG 50 (PRESSURISED INHALATION,SOLUTION)
     Route: 055
  7. ALVESCO [Suspect]
     Active Substance: CICLESONIDE
     Dosage: 50 MG, QD
  8. ATENOLOL [Suspect]
     Active Substance: ATENOLOL
     Indication: Product used for unknown indication
     Dosage: 50 MG, QD
     Route: 048
  9. ATENOLOL [Suspect]
     Active Substance: ATENOLOL
     Dosage: UNK
     Route: 048
  10. ATENOLOL [Suspect]
     Active Substance: ATENOLOL
     Dosage: UNK
  11. CLARITHROMYCIN [Suspect]
     Active Substance: CLARITHROMYCIN
     Indication: Product used for unknown indication
  12. CLARITHROMYCIN [Suspect]
     Active Substance: CLARITHROMYCIN
  13. CLARITHROMYCIN [Suspect]
     Active Substance: CLARITHROMYCIN
  14. CLARITHROMYCIN [Suspect]
     Active Substance: CLARITHROMYCIN
  15. CLARITHROMYCIN [Suspect]
     Active Substance: CLARITHROMYCIN
     Dosage: UNK
  16. CLARITHROMYCIN [Suspect]
     Active Substance: CLARITHROMYCIN
     Dosage: UNK
  17. CLARITHROMYCIN [Suspect]
     Active Substance: CLARITHROMYCIN
     Dosage: 75 MG, QD
  18. EBASTINE [Suspect]
     Active Substance: EBASTINE
     Indication: Product used for unknown indication
     Dosage: 50 MG, QD
     Route: 048
  19. EBASTINE [Suspect]
     Active Substance: EBASTINE
     Dosage: 10 MG, QD
  20. EBASTINE [Suspect]
     Active Substance: EBASTINE
     Dosage: 5 MG, QD
     Route: 048
  21. DETROL LA [Suspect]
     Active Substance: TOLTERODINE TARTRATE
     Indication: Product used for unknown indication
     Dosage: 4 MG, QD (CAPSULE,SUSTAINED RELEASE)
  22. DETROL LA [Suspect]
     Active Substance: TOLTERODINE TARTRATE
     Dosage: 40 MG, QD
  23. DETROL LA [Suspect]
     Active Substance: TOLTERODINE TARTRATE
     Dosage: 4 UNK
  24. DOMPERIDONE [Suspect]
     Active Substance: DOMPERIDONE
     Indication: Product used for unknown indication
     Dosage: 10 MG, QD
  25. DOMPERIDONE [Suspect]
     Active Substance: DOMPERIDONE
     Dosage: 10 MG
  26. DOMPERIDONE [Suspect]
     Active Substance: DOMPERIDONE
     Dosage: 10 MG, BID
  27. DOMPERIDONE [Suspect]
     Active Substance: DOMPERIDONE
  28. EBASTINE [Suspect]
     Active Substance: EBASTINE
     Indication: Product used for unknown indication
     Dosage: 10 MG, QD
  29. EBASTINE [Suspect]
     Active Substance: EBASTINE
     Dosage: 5 MG, QD
     Route: 048
  30. EBASTINE [Suspect]
     Active Substance: EBASTINE
     Dosage: 50 MG, QD
     Route: 048
  31. ECOTRIN [Suspect]
     Active Substance: ASPIRIN
     Indication: Product used for unknown indication
     Dosage: 1 DF, QD (TABLET (DELAYEDRELEASE))
  32. ECOTRIN [Suspect]
     Active Substance: ASPIRIN
     Dosage: TABLET
  33. EZETIMIBE [Suspect]
     Active Substance: EZETIMIBE
     Indication: Product used for unknown indication
     Dosage: 10 MG, QD
     Route: 048
  34. EZETIMIBE [Suspect]
     Active Substance: EZETIMIBE
     Dosage: 10 MG, QD
     Route: 048
  35. IMIPRAMINE HYDROCHLORIDE [Suspect]
     Active Substance: IMIPRAMINE HYDROCHLORIDE
     Indication: Product used for unknown indication
     Dosage: UNK
  36. IMIPRAMINE HYDROCHLORIDE [Suspect]
     Active Substance: IMIPRAMINE HYDROCHLORIDE
     Dosage: 50 MG, BID
  37. IMIPRAMINE HYDROCHLORIDE [Suspect]
     Active Substance: IMIPRAMINE HYDROCHLORIDE
     Dosage: 25 MG, BID
  38. IMIPRAMINE HYDROCHLORIDE [Suspect]
     Active Substance: IMIPRAMINE HYDROCHLORIDE
     Dosage: UNK
  39. IMIPRAMINE HYDROCHLORIDE [Suspect]
     Active Substance: IMIPRAMINE HYDROCHLORIDE
     Dosage: 50 MG, BID
  40. MAVIK [Suspect]
     Active Substance: TRANDOLAPRIL
     Indication: Product used for unknown indication
     Dosage: 2 MG, QD
     Route: 065
  41. PANTOPRAZOLE [Suspect]
     Active Substance: PANTOPRAZOLE
     Indication: Product used for unknown indication
  42. PANTOPRAZOLE [Suspect]
     Active Substance: PANTOPRAZOLE
     Dosage: 40 MG, QD
  43. PANTOPRAZOLE [Suspect]
     Active Substance: PANTOPRAZOLE
     Dosage: 40 MG, QD
     Route: 042
  44. PANTOPRAZOLE [Suspect]
     Active Substance: PANTOPRAZOLE
     Dosage: UNK
  45. ROSUVASTATIN CALCIUM [Suspect]
     Active Substance: ROSUVASTATIN CALCIUM
     Indication: Product used for unknown indication
     Route: 048
  46. ROSUVASTATIN CALCIUM [Suspect]
     Active Substance: ROSUVASTATIN CALCIUM
     Dosage: 20 MG
     Route: 048
  47. ROSUVASTATIN CALCIUM [Suspect]
     Active Substance: ROSUVASTATIN CALCIUM
     Dosage: 20 MG, QD
     Route: 048
  48. ROSUVASTATIN CALCIUM [Suspect]
     Active Substance: ROSUVASTATIN CALCIUM
     Dosage: UNK
  49. STELARA [Suspect]
     Active Substance: USTEKINUMAB
     Indication: Product used for unknown indication
     Dosage: SOLUTION SUBCUTENOUS
  50. STELARA [Suspect]
     Active Substance: USTEKINUMAB
     Dosage: UNK
  51. SUCRALFATE [Suspect]
     Active Substance: SUCRALFATE
     Indication: Product used for unknown indication
     Dosage: 1000 MG, QD
  52. SUCRALFATE [Suspect]
     Active Substance: SUCRALFATE
     Dosage: 1000 MG, BID
  53. SUCRALFATE [Suspect]
     Active Substance: SUCRALFATE
     Dosage: 10 MG, QD
  54. AERIUS (DESLORATADINE) [Suspect]
     Active Substance: DESLORATADINE
     Indication: Product used for unknown indication
     Dosage: 5 MG, QD
  55. SINGULAIR [Concomitant]
     Active Substance: MONTELUKAST SODIUM

REACTIONS (3)
  - Paranoia [Recovered/Resolved]
  - Psychotic disorder [Recovered/Resolved]
  - Hallucination, auditory [Recovered/Resolved]
